FAERS Safety Report 4773713-X (Version None)
Quarter: 2005Q3

REPORT INFORMATION
  Report Type: 
  Country: None (occurrence: None)
  Receive Date: 20050914
  Receipt Date: 20050715
  Transmission Date: 20060218
  Serious: Yes (Other)
  Sender: FDA-Public Use
  Company Number: 411221

PATIENT
  Age: 58 Year
  Sex: Female

DRUGS (1)
  1. BONIVA [Suspect]
     Indication: DRUG USE FOR UNKNOWN INDICATION
     Dates: start: 20050709, end: 20050709

REACTIONS (3)
  - BACK PAIN [None]
  - CHEST DISCOMFORT [None]
  - MOVEMENT DISORDER [None]
